FAERS Safety Report 4808161-7 (Version None)
Quarter: 2005Q4

REPORT INFORMATION
  Report Type: 
  Country: None (occurrence: None)
  Receive Date: 20051024
  Receipt Date: 20050726
  Transmission Date: 20060501
  Serious: Yes (Death, Hospitalization, Other)
  Sender: FDA-Public Use
  Company Number: US-ABBOTT-05P-163-0306781-00

PATIENT
  Sex: Female

DRUGS (18)
  1. HUMIRA 40 MG/ 0.8 ML PRE-FILLED SYRINGE [Suspect]
     Indication: RHEUMATOID ARTHRITIS
     Route: 058
     Dates: start: 20041001, end: 20050220
  2. METHOTREXATE SODIUM [Concomitant]
     Indication: DRUG USE FOR UNKNOWN INDICATION
  3. ERGOCALCIFEROL [Concomitant]
     Indication: DRUG USE FOR UNKNOWN INDICATION
     Route: 048
  4. ERGOCALCIFEROL [Concomitant]
  5. PROPACET 100 [Concomitant]
     Indication: DRUG USE FOR UNKNOWN INDICATION
     Dosage: 100/650 MG TABLETS
     Route: 048
  6. PROPACET 100 [Concomitant]
  7. VALPROATE SODIUM [Concomitant]
     Indication: DRUG USE FOR UNKNOWN INDICATION
     Route: 048
  8. VALPROATE SODIUM [Concomitant]
  9. CEPHALEXIN MONOHYDRATE [Concomitant]
     Indication: DRUG USE FOR UNKNOWN INDICATION
     Route: 048
  10. CEPHALEXIN MONOHYDRATE [Concomitant]
  11. METFORMIN [Concomitant]
     Indication: DRUG USE FOR UNKNOWN INDICATION
     Route: 048
  12. METFORMIN [Concomitant]
  13. PAROXETINE HYDROCHLORIDE [Concomitant]
     Indication: DRUG USE FOR UNKNOWN INDICATION
     Route: 048
  14. PAROXETINE HYDROCHLORIDE [Concomitant]
  15. LEVOTHYROXINE SODIUM [Concomitant]
     Indication: DRUG USE FOR UNKNOWN INDICATION
     Dosage: ONE HALF TABLET DAILY
  16. LEVOTHYROXINE SODIUM [Concomitant]
     Dosage: 1/2 TABLET DAILY
  17. FERROUS SULFATE TAB [Concomitant]
     Indication: DRUG USE FOR UNKNOWN INDICATION
  18. FERROUS SULFATE TAB [Concomitant]

REACTIONS (30)
  - ABASIA [None]
  - ABDOMINAL PAIN LOWER [None]
  - ADRENAL MASS [None]
  - ARTHRALGIA [None]
  - ASTHENIA [None]
  - COMMUNICATION DISORDER [None]
  - CONFUSIONAL STATE [None]
  - DEPRESSION [None]
  - DIARRHOEA [None]
  - DIFFICULTY IN WALKING [None]
  - DYSPEPSIA [None]
  - DYSPHAGIA [None]
  - DYSURIA [None]
  - ENCEPHALOPATHY [None]
  - EPILEPSY [None]
  - HAEMATOCHEZIA [None]
  - HAEMATURIA [None]
  - HEPATIC CIRRHOSIS [None]
  - HEPATIC FAILURE [None]
  - HEPATITIS C [None]
  - HYPOTHYROIDISM [None]
  - INTESTINAL MASS [None]
  - MENTAL STATUS CHANGES [None]
  - OBESITY [None]
  - OSTEOARTHRITIS [None]
  - POVERTY OF SPEECH [None]
  - PSORIASIS [None]
  - RECTAL HAEMORRHAGE [None]
  - TREATMENT NONCOMPLIANCE [None]
  - URINARY TRACT INFECTION [None]
